FAERS Safety Report 11347683 (Version 1)
Quarter: 2015Q3

REPORT INFORMATION
  Report Type: Spontaneous
  Country: US (occurrence: US)
  Receive Date: 20150803
  Receipt Date: 20150803
  Transmission Date: 20151125
  Serious: No
  Sender: FDA-Public Use
  Company Number: US-ELI_LILLY_AND_COMPANY-US201109006346

PATIENT
  Age: 94 Year
  Sex: Female

DRUGS (4)
  1. ZYPREXA [Suspect]
     Active Substance: OLANZAPINE
     Dosage: 5 MG, UNK
  2. REMERON [Concomitant]
     Active Substance: MIRTAZAPINE
  3. ZYPREXA [Suspect]
     Active Substance: OLANZAPINE
     Indication: SCHIZOPHRENIA
     Dosage: 5 MG, UNK
     Dates: start: 2009
  4. THORAZINE [Concomitant]
     Active Substance: CHLORPROMAZINE

REACTIONS (6)
  - Wrong technique in product usage process [Unknown]
  - Abnormal behaviour [Unknown]
  - Sleep disorder [Unknown]
  - Dysphagia [Unknown]
  - Unresponsive to stimuli [Unknown]
  - Communication disorder [Unknown]

NARRATIVE: CASE EVENT DATE: 201109
